FAERS Safety Report 21709524 (Version 1)
Quarter: 2022Q4

REPORT INFORMATION
  Report Type: Spontaneous
  Country: US (occurrence: US)
  Receive Date: 20221210
  Receipt Date: 20221210
  Transmission Date: 20230112
  Serious: Yes (Other)
  Sender: FDA-Public Use
  Company Number: US-TEVA-2022-US-2833379

PATIENT
  Sex: Female
  Weight: 90.72 kg

DRUGS (8)
  1. COPAXONE [Interacting]
     Active Substance: GLATIRAMER ACETATE
     Indication: Multiple sclerosis
     Dosage: 20 MG/ML, DAILY
     Route: 065
  2. MODAFINIL [Interacting]
     Active Substance: MODAFINIL
     Indication: Product used for unknown indication
     Route: 065
  3. IMIPRAMINE [Concomitant]
     Active Substance: IMIPRAMINE
     Indication: Product used for unknown indication
  4. VENLAFAXINE [Concomitant]
     Active Substance: VENLAFAXINE HYDROCHLORIDE
     Indication: Product used for unknown indication
  5. LISINOPRIL [Concomitant]
     Active Substance: LISINOPRIL
     Indication: Product used for unknown indication
  6. FAMOTIDINE [Concomitant]
     Active Substance: FAMOTIDINE
     Indication: Product used for unknown indication
  7. VITAMIN D [Concomitant]
     Active Substance: VITAMIN D NOS
     Indication: Product used for unknown indication
  8. MULTI-VITAMIN [Concomitant]
     Active Substance: .ALPHA.-TOCOPHEROL ACETATE, DL-\ASCORBIC ACID\CYANOCOBALAMIN\FLUORIDE ION\FOLIC ACID\NIACIN\PYRIDOXI
     Indication: Product used for unknown indication

REACTIONS (8)
  - Immunodeficiency [Unknown]
  - Muscle spasms [Unknown]
  - Gait inability [Unknown]
  - Dental discomfort [Unknown]
  - Flushing [Unknown]
  - Heart rate increased [Unknown]
  - Drug interaction [Unknown]
  - Off label use [Unknown]
